FAERS Safety Report 4377150-1 (Version None)
Quarter: 2004Q2

REPORT INFORMATION
  Report Type: 
  Country: None (occurrence: None)
  Receive Date: 20040614
  Receipt Date: 20040614
  Transmission Date: 20050107
  Serious: Yes (Hospitalization)
  Sender: FDA-Public Use
  Company Number: None

PATIENT
  Age: 58 Year
  Sex: Female
  Weight: 50 kg

DRUGS (2)
  1. IRINOTECAN [Suspect]
     Indication: NON-SMALL CELL LUNG CANCER
     Dosage: 150 MG Q 21 DAYS IV
     Route: 042
     Dates: start: 20040513, end: 20040622
  2. EPIRUBICIN [Suspect]
     Indication: NON-SMALL CELL LUNG CANCER
     Dosage: 75 MG Q 21 DAYS IV
     Route: 042
     Dates: start: 20040513, end: 20040513

REACTIONS (4)
  - DRY MOUTH [None]
  - HEART RATE IRREGULAR [None]
  - PARAESTHESIA [None]
  - SENSATION OF HEAVINESS [None]
